FAERS Safety Report 9156703 (Version 1)
Quarter: 2013Q1

REPORT INFORMATION
  Report Type: Spontaneous
  Country: GB (occurrence: None)
  Receive Date: 20130208
  Receipt Date: 20130208
  Transmission Date: 20140127
  Serious: Yes (Hospitalization, Other)
  Sender: FDA-Public Use
  Company Number: 2013P1001601

PATIENT
  Age: 92 Year
  Sex: Female

DRUGS (4)
  1. CIPROFLOXACIN [Suspect]
     Route: 048
     Dates: start: 20110505, end: 20110510
  2. AMOXICILLIN [Suspect]
     Dates: start: 20100610, end: 20100617
  3. CO-AMAXICLAV [Suspect]
     Route: 042
     Dates: start: 20110504, end: 20110304
  4. OMEPRAZOLE [Suspect]

REACTIONS (10)
  - Norovirus test positive [None]
  - Malaise [None]
  - Diarrhoea [None]
  - Vomiting [None]
  - Pyrexia [None]
  - Abdominal distension [None]
  - Clostridium difficile infection [None]
  - Colitis [None]
  - Pneumonia [None]
  - Moraxella test positive [None]
